FAERS Safety Report 25195867 (Version 1)
Quarter: 2025Q2

REPORT INFORMATION
  Report Type: Spontaneous
  Country: CN (occurrence: CN)
  Receive Date: 20250415
  Receipt Date: 20250415
  Transmission Date: 20250716
  Serious: Yes (Other)
  Sender: BAXTER
  Company Number: None

PATIENT
  Age: 44 Year
  Sex: Female
  Weight: 62.5 kg

DRUGS (4)
  1. CYCLOPHOSPHAMIDE [Suspect]
     Active Substance: CYCLOPHOSPHAMIDE
     Indication: Breast cancer female
     Dosage: 1 G, QD, IVGTT ON D1
     Route: 041
     Dates: start: 20250313, end: 20250313
  2. SODIUM CHLORIDE [Suspect]
     Active Substance: SODIUM CHLORIDE
     Indication: Medication dilution
     Dosage: 0.9% INJECTION 50 ML + CYCLOPHOSPHAMIDE FOR INJECTION 1G, QD, IVGTT ON D1
     Route: 041
     Dates: start: 20250313, end: 20250313
  3. DEXTROSE [Suspect]
     Active Substance: DEXTROSE MONOHYDRATE
     Indication: Medication dilution
     Dosage: 5% INJECTION 250 ML + DOXORUBICIN HYDROCHLORIDE LIPOSOME INJECTION 50MG, QD, IVGTT ON D1
     Route: 041
     Dates: start: 20250313, end: 20250313
  4. DOXORUBICIN HYDROCHLORIDE [Suspect]
     Active Substance: DOXORUBICIN HYDROCHLORIDE
     Indication: Breast cancer female
     Dosage: 50 MG, QD, SELF-PREPARED, IVGTT ON D1
     Route: 041
     Dates: start: 20250313, end: 20250313

REACTIONS (1)
  - Leukopenia [Unknown]

NARRATIVE: CASE EVENT DATE: 20250402
